FAERS Safety Report 7736165-3 (Version None)
Quarter: 2011Q3

REPORT INFORMATION
  Report Type: 
  Country: None (occurrence: None)
  Receive Date: 20110817
  Receipt Date: 20100830
  Transmission Date: 20111222
  Serious: No
  Sender: FDA-Public Use
  Company Number: 20107880

PATIENT
  Sex: Male

DRUGS (1)
  1. LIORESAL [Suspect]
     Indication: MUSCLE SPASTICITY
     Dosage: DAILY, INTRATHECAL
     Route: 037

REACTIONS (5)
  - MUSCLE RIGIDITY [None]
  - PRURITUS [None]
  - DRUG INEFFECTIVE [None]
  - MUSCLE SPASTICITY [None]
  - HYPOTONIA [None]
